FAERS Safety Report 13108248 (Version 1)
Quarter: 2017Q1

REPORT INFORMATION
  Report Type: Spontaneous
  Country: US (occurrence: US)
  Receive Date: 20170111
  Receipt Date: 20170111
  Transmission Date: 20170428
  Serious: Yes (Hospitalization)
  Sender: FDA-Public Use
  Company Number: None

PATIENT
  Age: 30 Year
  Sex: Male

DRUGS (1)
  1. VANCOMYCIN 1 GM PRESENIUS-KABI [Suspect]
     Active Substance: VANCOMYCIN
     Indication: MASTOIDITIS
     Route: 042
     Dates: start: 20170109, end: 20170109

REACTIONS (3)
  - Feeling hot [None]
  - Presyncope [None]
  - Pruritus [None]

NARRATIVE: CASE EVENT DATE: 20170110
